FAERS Safety Report 11465042 (Version 3)
Quarter: 2015Q4

REPORT INFORMATION
  Report Type: Spontaneous
  Country: US (occurrence: US)
  Receive Date: 20150907
  Receipt Date: 20151014
  Transmission Date: 20160304
  Serious: Yes (Other)
  Sender: FDA-Public Use
  Company Number: US-AMGEN-USASP2015090314

PATIENT
  Age: 62 Year
  Sex: Female
  Weight: 76.45 kg

DRUGS (7)
  1. AROMASIN [Suspect]
     Active Substance: EXEMESTANE
     Indication: PALLIATIVE CARE
     Dosage: UNK
     Route: 065
     Dates: start: 201308, end: 201412
  2. XGEVA [Suspect]
     Active Substance: DENOSUMAB
     Indication: PRODUCT USED FOR UNKNOWN INDICATION
     Dosage: UNK
     Route: 065
     Dates: start: 20130815
  3. IBRANCE [Suspect]
     Active Substance: PALBOCICLIB
     Indication: PRODUCT USED FOR UNKNOWN INDICATION
     Dosage: ONCE A DAY X 3 WEEKS, THEN 1 ONE WEEK OFF, THEN RESTART
     Route: 048
     Dates: start: 20150723
  4. FASLODEX [Concomitant]
     Active Substance: FULVESTRANT
     Indication: PALLIATIVE CARE
     Dosage: UNK
     Dates: start: 20141212
  5. XARELTO [Concomitant]
     Active Substance: RIVAROXABAN
  6. AVASTIN [Suspect]
     Active Substance: BEVACIZUMAB
     Indication: OESTROGEN RECEPTOR POSITIVE BREAST CANCER
     Dosage: UNK
     Route: 065
     Dates: start: 200804, end: 200809
  7. CYTOXAN [Suspect]
     Active Substance: CYCLOPHOSPHAMIDE
     Indication: OESTROGEN RECEPTOR POSITIVE BREAST CANCER
     Dosage: UNK
     Route: 065
     Dates: start: 200804, end: 200809

REACTIONS (7)
  - Metastases to liver [Unknown]
  - Tooth disorder [Unknown]
  - Metastases to bone [Unknown]
  - Decreased activity [Unknown]
  - Metastases to central nervous system [Unknown]
  - Clavicle fracture [Unknown]
  - Fatigue [Unknown]

NARRATIVE: CASE EVENT DATE: 20140926
